FAERS Safety Report 18843031 (Version 1)
Quarter: 2021Q1

REPORT INFORMATION
  Report Type: Report from Study
  Country: US (occurrence: US)
  Receive Date: 20210203
  Receipt Date: 20210203
  Transmission Date: 20210419
  Serious: No
  Sender: FDA-Public Use
  Company Number: US-EXELIXIS-CABO-20027712

PATIENT
  Sex: Female

DRUGS (9)
  1. GABAPENTIN. [Concomitant]
     Active Substance: GABAPENTIN
  2. ALPRAZOLAM. [Concomitant]
     Active Substance: ALPRAZOLAM
  3. LEVOTHYROXINE SODIUM. [Concomitant]
     Active Substance: LEVOTHYROXINE SODIUM
  4. FLUOXETINE [Concomitant]
     Active Substance: FLUOXETINE HYDROCHLORIDE
  5. CABOMETYX [Suspect]
     Active Substance: CABOZANTINIB S-MALATE
     Indication: RENAL CANCER
     Dosage: 40 MG, QD
     Route: 048
     Dates: start: 20170720
  6. ATORVASTATIN [Concomitant]
     Active Substance: ATORVASTATIN
  7. FAMOTIDINE. [Concomitant]
     Active Substance: FAMOTIDINE
  8. LISINOPRIL. [Concomitant]
     Active Substance: LISINOPRIL
  9. CABOMETYX [Suspect]
     Active Substance: CABOZANTINIB S-MALATE
     Indication: METASTASES TO LUNG
     Dosage: 40 MG, QD
     Route: 048

REACTIONS (6)
  - Nocturia [Unknown]
  - Pain in extremity [Not Recovered/Not Resolved]
  - Depression [Unknown]
  - Insomnia [Unknown]
  - Fatigue [Unknown]
  - Malignant neoplasm progression [Unknown]
